FAERS Safety Report 23787764 (Version 3)
Quarter: 2024Q2

REPORT INFORMATION
  Report Type: Spontaneous
  Country: US (occurrence: US)
  Receive Date: 20240426
  Receipt Date: 20240614
  Transmission Date: 20240715
  Serious: Yes (Other)
  Sender: FDA-Public Use
  Company Number: US-PFIZER INC-202400091726

PATIENT
  Age: 65 Year
  Sex: Female
  Weight: 58.97 kg

DRUGS (2)
  1. ESTRING [Suspect]
     Active Substance: ESTRADIOL
     Indication: Atrophic vulvovaginitis
     Dosage: 2 MG
     Route: 067
     Dates: start: 20240417
  2. ESTRING [Suspect]
     Active Substance: ESTRADIOL
     Indication: Menopause

REACTIONS (7)
  - Device difficult to use [Unknown]
  - Device placement issue [Unknown]
  - Administration site pain [Not Recovered/Not Resolved]
  - Administration site bruise [Not Recovered/Not Resolved]
  - Administration site haemorrhage [Not Recovered/Not Resolved]
  - Discomfort [Not Recovered/Not Resolved]
  - Micturition urgency [Unknown]

NARRATIVE: CASE EVENT DATE: 20240417
